FAERS Safety Report 5887567-1 (Version None)
Quarter: 2008Q3

REPORT INFORMATION
  Report Type: 
  Country: None (occurrence: None)
  Receive Date: 20080918
  Receipt Date: 20080912
  Transmission Date: 20090109
  Serious: Yes (Disabling, Other)
  Sender: FDA-Public Use
  Company Number: PHHY2008IT19809

PATIENT
  Sex: Male

DRUGS (1)
  1. DEFERASIROX [Suspect]
     Indication: IRON OVERLOAD
     Dosage: UNK
     Route: 048
     Dates: start: 20080227, end: 20080804

REACTIONS (2)
  - BLOOD CREATININE INCREASED [None]
  - CREATININE RENAL CLEARANCE DECREASED [None]
